FAERS Safety Report 4594675-4 (Version None)
Quarter: 2005Q1

REPORT INFORMATION
  Report Type: 
  Country: None (occurrence: None)
  Receive Date: 20050301
  Receipt Date: 20041210
  Transmission Date: 20050727
  Serious: Yes (Disabling)
  Sender: FDA-Public Use
  Company Number: US-BRISTOL-MYERS SQUIBB COMPANY-12792057

PATIENT
  Age: 66 Year
  Sex: Male

DRUGS (8)
  1. ERBITUX [Suspect]
     Indication: COLON CANCER METASTATIC
     Dosage: DOSE HELD ON 27-OCT-2004 DUE TO RASH.
     Route: 042
     Dates: start: 20041014, end: 20041014
  2. ATIVAN [Concomitant]
     Indication: PREMEDICATION
     Dosage: ADMINISTERED IV PUSH.
     Route: 042
     Dates: start: 20041014, end: 20041014
  3. ATROPINE [Concomitant]
     Indication: PREMEDICATION
     Dosage: ADMINISTERED IV PUSH.
     Route: 042
     Dates: start: 20041014, end: 20041014
  4. BENADRYL [Concomitant]
     Indication: PREMEDICATION
     Route: 048
     Dates: start: 20041014, end: 20041014
  5. DEXAMETHASONE [Concomitant]
     Indication: PREMEDICATION
     Dosage: ADMINISTERED IV PUSH.
     Route: 042
     Dates: start: 20041014, end: 20041014
  6. KYTRIL [Concomitant]
     Indication: PREMEDICATION
     Dosage: ADMINISTERED IV PUSH.
     Route: 042
     Dates: start: 20041014, end: 20041014
  7. TYLENOL (CAPLET) [Concomitant]
     Indication: PREMEDICATION
     Route: 048
     Dates: start: 20041014, end: 20041014
  8. ZANTAC [Concomitant]
     Indication: PREMEDICATION
     Dosage: ADMINISTERED IV PUSH.
     Route: 042
     Dates: start: 20041014, end: 20041014

REACTIONS (1)
  - DERMATITIS ACNEIFORM [None]
